FAERS Safety Report 9276293 (Version 1)
Quarter: 2012Q4

REPORT INFORMATION
  Report Type: Spontaneous
  Country: JP (occurrence: None)
  Receive Date: 20121109
  Receipt Date: 20121109
  Transmission Date: 20130627
  Serious: Yes (Death, Other)
  Sender: FDA-Public Use
  Company Number: 2012S1000138

PATIENT
  Age: 85 Year
  Sex: Male
  Weight: 76 kg

DRUGS (10)
  1. CUBICIN [Suspect]
     Indication: PSOAS ABSCESS
     Route: 041
     Dates: start: 20120119, end: 20120129
  2. CUBICIN [Suspect]
     Indication: INFECTIVE SPONDYLITIS
     Route: 041
     Dates: start: 20120119, end: 20120129
  3. ZYVOX [Concomitant]
  4. ALL OTHER THERAPEUTIC PRODUCTS [Concomitant]
  5. CARPERITIDE [Concomitant]
  6. LASIX /00032601/ [Concomitant]
  7. HICALIQ [Concomitant]
  8. SEISHOKU [Concomitant]
  9. AMINIC /01068001/ [Concomitant]
  10. VITAJECT [Concomitant]

REACTIONS (5)
  - Oliguria [None]
  - Renal failure [None]
  - Cardiac failure [None]
  - Anaemia [None]
  - Disseminated intravascular coagulation [None]
